FAERS Safety Report 10770144 (Version 4)
Quarter: 2015Q3

REPORT INFORMATION
  Report Type: Spontaneous
  Country: US (occurrence: US)
  Receive Date: 20150206
  Receipt Date: 20150720
  Transmission Date: 20151125
  Serious: Yes (Other)
  Sender: FDA-Public Use
  Company Number: US-B.I. PHARMACEUTICALS,INC./RIDGEFIELD-2015-BI-05560BP

PATIENT
  Age: 66 Year
  Sex: Female
  Weight: 77.11 kg

DRUGS (4)
  1. LIPITOR [Concomitant]
     Active Substance: ATORVASTATIN CALCIUM
     Indication: BLOOD CHOLESTEROL INCREASED
     Dosage: 20 MG
     Route: 048
     Dates: start: 2013
  2. FLONASE [Concomitant]
     Active Substance: FLUTICASONE PROPIONATE
     Indication: RHINORRHOEA
     Dosage: FORMULATION: NASAL SPRAY; DOSE PER APPLICATION: 1 SPRAY EACH NOSTRIL; DAILY DOSE: 2 SPRAYS
     Route: 045
     Dates: start: 201406
  3. OPANA [Concomitant]
     Active Substance: OXYMORPHONE HYDROCHLORIDE
     Indication: PAIN
     Dosage: 30 MG
     Route: 048
     Dates: start: 201206
  4. SPIRIVA [Suspect]
     Active Substance: TIOTROPIUM BROMIDE MONOHYDRATE
     Indication: CHRONIC OBSTRUCTIVE PULMONARY DISEASE
     Dosage: 18 MCG
     Route: 055
     Dates: start: 201401

REACTIONS (2)
  - Lung neoplasm malignant [Unknown]
  - Hearing impaired [Unknown]

NARRATIVE: CASE EVENT DATE: 201403
